FAERS Safety Report 5954119-4 (Version None)
Quarter: 2008Q4

REPORT INFORMATION
  Report Type: 
  Country: None (occurrence: None)
  Receive Date: 20081117
  Receipt Date: 20081113
  Transmission Date: 20090506
  Serious: Yes (Hospitalization)
  Sender: FDA-Public Use
  Company Number: US-SP-2008-02436

PATIENT
  Age: 44 Year
  Sex: Female

DRUGS (10)
  1. ADACEL [Suspect]
     Indication: IMMUNISATION
     Route: 065
     Dates: start: 20080409
  2. ADACEL [Suspect]
     Route: 065
     Dates: start: 20080409
  3. ADACEL [Suspect]
     Route: 065
     Dates: start: 20080409
  4. ADACEL [Suspect]
     Route: 065
     Dates: start: 20080409
  5. TUBERSOL [Suspect]
     Indication: TUBERCULIN TEST
     Route: 065
     Dates: start: 20080409
  6. DEPAKOTE [Concomitant]
  7. ZOCOR [Concomitant]
  8. WELLBUTRIN [Concomitant]
  9. TOPAMAX [Concomitant]
  10. VIVEL [Concomitant]

REACTIONS (18)
  - ABDOMINAL PAIN UPPER [None]
  - ANAEMIA [None]
  - ARTHRALGIA [None]
  - CHILLS [None]
  - ERYTHEMA INFECTIOSUM [None]
  - FATIGUE [None]
  - GINGIVAL BLEEDING [None]
  - HAEMORRHAGE SUBCUTANEOUS [None]
  - HEADACHE [None]
  - INJECTION SITE PAIN [None]
  - INSOMNIA [None]
  - INTERMITTENT CLAUDICATION [None]
  - PETECHIAE [None]
  - PURPURA [None]
  - PYREXIA [None]
  - RASH MACULAR [None]
  - SERUM SICKNESS [None]
  - THROMBOCYTOPENIA [None]
